FAERS Safety Report 9613551 (Version 6)
Quarter: 2013Q4

REPORT INFORMATION
  Report Type: Spontaneous
  Country: IT (occurrence: None)
  Receive Date: 20131008
  Receipt Date: 20131213
  Transmission Date: 20140711
  Serious: Yes (Hospitalization)
  Sender: FDA-Public Use
  Company Number: AUR-APL-2013-08175

PATIENT
  Age: 77 Year
  Sex: Female

DRUGS (4)
  1. RAMIPRIL [Suspect]
     Indication: ESSENTIAL HYPERTENSION
     Route: 048
     Dates: start: 20130919, end: 20130919
  2. PANTOPRAZOLE ACTAVIS (PANTOPRAZOLE SODIUM SESQUIHYDRATE) [Concomitant]
  3. LASIX (FUROSEMIDE) [Concomitant]
  4. PARACETAMOL (PARACETAMOL) [Concomitant]

REACTIONS (2)
  - Oedema [None]
  - Angioedema [None]
